FAERS Safety Report 8422505-9 (Version None)
Quarter: 2012Q2

REPORT INFORMATION
  Report Type: 
  Country: None (occurrence: None)
  Receive Date: 20120608
  Receipt Date: 20120530
  Transmission Date: 20120825
  Serious: Yes (Hospitalization, Other)
  Sender: FDA-Public Use
  Company Number: US-ABBOTT-12P-163-0941165-00

PATIENT
  Sex: Female
  Weight: 199.76 kg

DRUGS (6)
  1. PLAQUENIL [Concomitant]
     Indication: RHEUMATOID ARTHRITIS
  2. METHOTREXATE [Concomitant]
     Indication: RHEUMATOID ARTHRITIS
     Dosage: 9 PILLS PER WEEK
  3. HUMIRA [Suspect]
     Indication: RHEUMATOID ARTHRITIS
     Dates: start: 20081101, end: 20110101
  4. UNKNOWN MEDICATIONS [Concomitant]
     Indication: PRODUCT USED FOR UNKNOWN INDICATION
  5. HUMIRA [Suspect]
     Dates: start: 20120531
  6. PREDNISONE TAB [Concomitant]
     Indication: RHEUMATOID ARTHRITIS

REACTIONS (16)
  - HUMERUS FRACTURE [None]
  - BACK PAIN [None]
  - FALL [None]
  - BRONCHITIS [None]
  - URINARY TRACT INFECTION [None]
  - FATIGUE [None]
  - HEADACHE [None]
  - PAIN IN EXTREMITY [None]
  - DRUG INEFFECTIVE [None]
  - ABDOMINAL DISCOMFORT [None]
  - PNEUMONIA [None]
  - MOBILITY DECREASED [None]
  - SOMNOLENCE [None]
  - RHONCHI [None]
  - PLEURISY [None]
  - NAUSEA [None]
